FAERS Safety Report 14225266 (Version 1)
Quarter: 2017Q4

REPORT INFORMATION
  Report Type: Spontaneous
  Country: GB (occurrence: GB)
  Receive Date: 20171127
  Receipt Date: 20171127
  Transmission Date: 20180321
  Serious: Yes (Death, Other)
  Sender: FDA-Public Use
  Company Number: PHHY2017GB159090

PATIENT
  Age: 17 Year
  Sex: Female
  Weight: 57 kg

DRUGS (6)
  1. SEPTRIN [Concomitant]
     Active Substance: SULFAMETHOXAZOLE\TRIMETHOPRIM
     Indication: PRODUCT USED FOR UNKNOWN INDICATION
     Dosage: 480 MG, BID (SAT AND SUN)
     Route: 048
     Dates: start: 2016
  2. PAZOPANIB [Suspect]
     Active Substance: PAZOPANIB
     Indication: DESMOPLASTIC SMALL ROUND CELL TUMOUR
     Dosage: 800 MG, QD
     Route: 048
     Dates: start: 20170807, end: 20171020
  3. MELATONIN [Concomitant]
     Active Substance: MELATONIN
     Indication: PRODUCT USED FOR UNKNOWN INDICATION
     Dosage: 6 MG, QD
     Route: 048
     Dates: start: 2016
  4. ONDANSETRON [Concomitant]
     Active Substance: ONDANSETRON
     Indication: PRODUCT USED FOR UNKNOWN INDICATION
     Dosage: 8 MG, PRN
     Route: 065
  5. CYCLIZINE [Concomitant]
     Active Substance: CYCLIZINE
     Indication: PRODUCT USED FOR UNKNOWN INDICATION
     Dosage: 50 MG, PRN
     Route: 065
  6. ACETAMINOPHEN. [Concomitant]
     Active Substance: ACETAMINOPHEN
     Indication: PRODUCT USED FOR UNKNOWN INDICATION
     Dosage: UNK
     Route: 065

REACTIONS (5)
  - Malignant neoplasm progression [Fatal]
  - Product use in unapproved indication [Unknown]
  - Alanine aminotransferase increased [Recovered/Resolved]
  - Ascites [Unknown]
  - Desmoplastic small round cell tumour [Fatal]

NARRATIVE: CASE EVENT DATE: 20171020
